FAERS Safety Report 4588070-1 (Version None)
Quarter: 2005Q1

REPORT INFORMATION
  Report Type: 
  Country: None (occurrence: None)
  Receive Date: 20050216
  Receipt Date: 20050131
  Transmission Date: 20050727
  Serious: Yes (Other)
  Sender: FDA-Public Use
  Company Number: DE_050215186

PATIENT
  Age: 69 Year
  Sex: Male

DRUGS (4)
  1. ZYPREXA [Suspect]
     Indication: PSYCHOTIC DISORDER
     Dosage: 2.5 MG IN THE EVENING
     Route: 048
     Dates: start: 19970101, end: 20050129
  2. NEXIUM [Concomitant]
  3. LASIX [Concomitant]
  4. COSOPT [Concomitant]

REACTIONS (1)
  - HYPOTHERMIA [None]
